FAERS Safety Report 16306691 (Version 1)
Quarter: 2019Q2

REPORT INFORMATION
  Report Type: Spontaneous
  Country: US (occurrence: US)
  Receive Date: 20190513
  Receipt Date: 20190513
  Transmission Date: 20190711
  Serious: No
  Sender: FDA-Public Use
  Company Number: US-TEVA-2019-US-1046286

PATIENT
  Sex: Female

DRUGS (1)
  1. WARFARIN SODIUM TABLET [Suspect]
     Active Substance: WARFARIN SODIUM
     Route: 065
     Dates: start: 2017, end: 2017

REACTIONS (1)
  - Abdominal discomfort [Recovered/Resolved]

NARRATIVE: CASE EVENT DATE: 2017
